FAERS Safety Report 15666399 (Version 1)
Quarter: 2018Q4

REPORT INFORMATION
  Report Type: Report from Study
  Country: US (occurrence: US)
  Receive Date: 20181128
  Receipt Date: 20181128
  Transmission Date: 20190205
  Serious: Yes (Other)
  Sender: FDA-Public Use
  Company Number: US-SAKK-2018SA174099AA

PATIENT
  Age: 72 Year
  Sex: Male

DRUGS (1)
  1. INSULIN GLARGINE [Suspect]
     Active Substance: INSULIN GLARGINE
     Indication: TYPE 2 DIABETES MELLITUS
     Dosage: 22 U, QD
     Route: 058

REACTIONS (2)
  - Eye disorder [Not Recovered/Not Resolved]
  - Diabetic retinal oedema [Not Recovered/Not Resolved]
